FAERS Safety Report 20614190 (Version 2)
Quarter: 2022Q2

REPORT INFORMATION
  Report Type: Report from Study
  Country: NL (occurrence: NL)
  Receive Date: 20220320
  Receipt Date: 20220418
  Transmission Date: 20220720
  Serious: Yes (Other)
  Sender: FDA-Public Use
  Company Number: NL-NOVARTISPH-NVSC2022NL059333

PATIENT
  Age: 79 Year
  Sex: Male
  Weight: 86 kg

DRUGS (9)
  1. OCTREOTIDE ACETATE [Suspect]
     Active Substance: OCTREOTIDE ACETATE
     Indication: Acromegaly
     Dosage: UNK (1 X PER 4 WEEK)
     Route: 030
  2. OCTREOTIDE ACETATE [Suspect]
     Active Substance: OCTREOTIDE ACETATE
     Dosage: 20 MG (ONCE EVERY 4 WEEK)
     Route: 065
  3. OCTREOTIDE ACETATE [Suspect]
     Active Substance: OCTREOTIDE ACETATE
  4. CABERGOLINE [Concomitant]
     Active Substance: CABERGOLINE
     Indication: Product used for unknown indication
     Dosage: 0.25 MG (TWICE A WEEK)
     Route: 065
  5. ANDROGEL [Concomitant]
     Active Substance: TESTOSTERONE
     Indication: Hypogonadism
     Dosage: UNK (1 DD 4 PUMP HITS)
     Route: 065
  6. PERINDOPRIL [Concomitant]
     Active Substance: PERINDOPRIL
     Indication: Product used for unknown indication
     Dosage: 4 MG (1DD)
     Route: 065
  7. OMEPRAZOLE [Concomitant]
     Active Substance: OMEPRAZOLE
     Indication: Product used for unknown indication
     Dosage: 40 UNK (DD)
     Route: 065
  8. ASCAL [Concomitant]
     Indication: Product used for unknown indication
     Dosage: 100 MG (1DD)
     Route: 065
  9. ATORVASTATIN [Concomitant]
     Active Substance: ATORVASTATIN
     Indication: Product used for unknown indication
     Dosage: 40 MG (1 DD)
     Route: 065

REACTIONS (7)
  - Erectile dysfunction [Not Recovered/Not Resolved]
  - Skin irritation [Not Recovered/Not Resolved]
  - Skin discomfort [Unknown]
  - Skin burning sensation [Unknown]
  - Scar [Unknown]
  - Rash pruritic [Unknown]
  - Insomnia [Unknown]

NARRATIVE: CASE EVENT DATE: 20220301
